FAERS Safety Report 21173898 (Version 1)
Quarter: 2022Q3

REPORT INFORMATION
  Report Type: Spontaneous
  Country: None (occurrence: CZ)
  Receive Date: 20220804
  Receipt Date: 20220804
  Transmission Date: 20221027
  Serious: Yes (Hospitalization, Other)
  Sender: FDA-Public Use
  Company Number: CZ-B.Braun Medical Inc.-2131531

PATIENT
  Age: 67 Year
  Sex: Male

DRUGS (11)
  1. METRONIDAZOLE [Suspect]
     Active Substance: METRONIDAZOLE
  2. PULMICORT TURBUHALER [Suspect]
     Active Substance: BUDESONIDE
  3. SOLU-MEDROL [Suspect]
     Active Substance: METHYLPREDNISOLONE SODIUM SUCCINATE
  4. AMOXICILLIN\CLAVULANATE POTASSIUM [Suspect]
     Active Substance: AMOXICILLIN\CLAVULANATE POTASSIUM
  5. CLARITHROMYCIN [Suspect]
     Active Substance: CLARITHROMYCIN
  6. PIPERACILLIN AND TAZOBACTAM [Suspect]
     Active Substance: PIPERACILLIN SODIUM\TAZOBACTAM SODIUM
  7. GENTAMICIN [Suspect]
     Active Substance: GENTAMICIN
  8. CEFOTAXIME [Suspect]
     Active Substance: CEFOTAXIME SODIUM
  9. NADROPARIN CALCIUM [Concomitant]
     Active Substance: NADROPARIN CALCIUM
  10. METAMIZOLE [Concomitant]
     Active Substance: METAMIZOLE
  11. FUROSEMIDE [Concomitant]
     Active Substance: FUROSEMIDE

REACTIONS (1)
  - Clostridium difficile colitis [Recovered/Resolved]
